FAERS Safety Report 4297847-1 (Version None)
Quarter: 2004Q1

REPORT INFORMATION
  Report Type: 
  Country: None (occurrence: None)
  Receive Date: 20040213
  Receipt Date: 20040203
  Transmission Date: 20041129
  Serious: No
  Sender: FDA-Public Use
  Company Number: 04P-087-0249545-00

PATIENT
  Age: 66 Year
  Sex: Female
  Weight: 56 kg

DRUGS (6)
  1. BIAXIN [Suspect]
     Indication: HELICOBACTER INFECTION
     Dosage: 400 MG, 2 IN 1 D, PER ORAL
     Route: 048
     Dates: start: 20031025, end: 20031028
  2. OMEPRAZOLE [Suspect]
     Indication: HELICOBACTER INFECTION
     Dosage: 20 MG, 2 IN 1 D, PER ORAL
     Route: 048
     Dates: start: 20031025, end: 20031028
  3. AMOXICILLIN [Suspect]
     Indication: HELICOBACTER INFECTION
     Dosage: 750 MG, 2 IN 1 D, PER ORAL
     Route: 048
     Dates: start: 20031025, end: 20031028
  4. PRAVASTATIN SODIUM [Concomitant]
  5. NIFEDIPINE [Concomitant]
  6. FAMOTIDINE [Concomitant]

REACTIONS (7)
  - ANOREXIA [None]
  - HEPATIC FUNCTION ABNORMAL [None]
  - OEDEMA PERIPHERAL [None]
  - PULMONARY VALVE INCOMPETENCE [None]
  - RENAL IMPAIRMENT [None]
  - SINUS TACHYCARDIA [None]
  - URINE OUTPUT DECREASED [None]
